FAERS Safety Report 15671063 (Version 1)
Quarter: 2018Q4

REPORT INFORMATION
  Report Type: Spontaneous
  Country: HR (occurrence: HR)
  Receive Date: 20181129
  Receipt Date: 20181129
  Transmission Date: 20190205
  Serious: Yes (Hospitalization)
  Sender: FDA-Public Use
  Company Number: HR-TEVA-2018-HR-979092

PATIENT
  Age: 71 Year
  Sex: Male
  Weight: 113 kg

DRUGS (4)
  1. CIPROMED [Suspect]
     Active Substance: CIPROFLOXACIN
     Indication: STAPHYLOCOCCAL SEPSIS
     Dosage: 1000 MILLIGRAM DAILY; 500 MG; 1,0,1
     Route: 048
     Dates: start: 20181006
  2. GENTAMICIN 120 MG/2 ML INJEKCIJE [Suspect]
     Active Substance: GENTAMICIN
     Indication: STAPHYLOCOCCAL SEPSIS
     Dosage: 240 MILLIGRAM DAILY; 120 MG; 2,0,0
     Route: 042
     Dates: start: 20181002, end: 20181018
  3. METRONIDAZOL B. BRAUN [Suspect]
     Active Substance: METRONIDAZOLE
     Indication: STAPHYLOCOCCAL SEPSIS
     Dosage: 1500 MILLIGRAM DAILY; 500 MG; 1,1,1
     Route: 042
     Dates: start: 20181002, end: 20181009
  4. FLUKLOKSACILIN ALTAMEDICS [Suspect]
     Active Substance: FLUCLOXACILLIN SODIUM
     Indication: STAPHYLOCOCCAL SEPSIS
     Dosage: 12 GRAM DAILY; 1 G; 6 X 2 G
     Route: 042
     Dates: start: 20181009

REACTIONS (3)
  - Rash maculo-papular [Recovering/Resolving]
  - Purpura [Recovering/Resolving]
  - Renal impairment [Recovering/Resolving]

NARRATIVE: CASE EVENT DATE: 20181006
